FAERS Safety Report 24090964 (Version 1)
Quarter: 2024Q3

REPORT INFORMATION
  Report Type: Spontaneous
  Country: EG (occurrence: None)
  Receive Date: 20240713
  Receipt Date: 20240713
  Transmission Date: 20241016
  Serious: Yes (Other)
  Sender: Public
  Company Number: None

PATIENT
  Age: 67 Year
  Sex: Male

DRUGS (2)
  1. NORVASC [Suspect]
     Active Substance: AMLODIPINE BESYLATE
     Dates: start: 20210101
  2. CARDURA [Suspect]
     Active Substance: DOXAZOSIN MESYLATE

REACTIONS (1)
  - Oesophageal spasm [None]

NARRATIVE: CASE EVENT DATE: 20240712
